FAERS Safety Report 4547898-4 (Version None)
Quarter: 2005Q1

REPORT INFORMATION
  Report Type: 
  Country: None (occurrence: None)
  Receive Date: 20050110
  Receipt Date: 20041229
  Transmission Date: 20050727
  Serious: Yes (Hospitalization)
  Sender: FDA-Public Use
  Company Number: US-JNJFOC-20041103478

PATIENT
  Age: 62 Year
  Sex: Female
  Weight: 96.62 kg

DRUGS (1)
  1. REMICADE [Suspect]
     Indication: RHEUMATOID ARTHRITIS
     Route: 042

REACTIONS (2)
  - PNEUMONIA LEGIONELLA [None]
  - RENAL FAILURE ACUTE [None]
